FAERS Safety Report 5482655-6 (Version None)
Quarter: 2007Q4

REPORT INFORMATION
  Report Type: 
  Country: None (occurrence: None)
  Receive Date: 20071011
  Receipt Date: 20071010
  Transmission Date: 20080405
  Serious: Yes (Hospitalization)
  Sender: FDA-Public Use
  Company Number: FR-WYE-H00589507

PATIENT
  Sex: Female

DRUGS (9)
  1. CORDARONE [Suspect]
     Route: 048
  2. IMOVANE [Suspect]
     Route: 048
  3. PREVISCAN [Suspect]
     Dosage: DOSE AND FREQUENCY NOT SPECIFIED
     Route: 048
  4. CORVASAL [Suspect]
     Dosage: DOSE AND FREQUENCY NOT SPECIFIED
     Route: 048
     Dates: end: 20070517
  5. PAROXETINE [Suspect]
     Route: 048
  6. SOLIAN [Suspect]
     Indication: PSYCHOTIC DISORDER
     Route: 048
     Dates: start: 20070418, end: 20070531
  7. SOLIAN [Suspect]
     Route: 048
     Dates: end: 20070611
  8. SOLIAN [Suspect]
     Route: 048
     Dates: start: 20070612
  9. HALDOL [Suspect]
     Indication: PSYCHOTIC DISORDER
     Route: 048
     Dates: end: 20070418

REACTIONS (4)
  - CONDITION AGGRAVATED [None]
  - DELIRIUM [None]
  - EXTRAPYRAMIDAL DISORDER [None]
  - FALL [None]
